FAERS Safety Report 8044553-3 (Version None)
Quarter: 2012Q1

REPORT INFORMATION
  Report Type: 
  Country: None (occurrence: None)
  Receive Date: 20120113
  Receipt Date: 20120111
  Transmission Date: 20120608
  Serious: Yes (Other)
  Sender: FDA-Public Use
  Company Number: US-PFIZER INC-2012009216

PATIENT
  Sex: Male
  Weight: 86.17 kg

DRUGS (3)
  1. LIPITOR [Suspect]
     Dosage: 20 MG, DAILY
     Route: 048
  2. LEVOTHYROXINE [Concomitant]
     Indication: HYPOTHYROIDISM
     Dosage: 25 UG DAILY
     Dates: start: 20110101
  3. LIPITOR [Suspect]
     Indication: MYOCARDIAL INFARCTION
     Dosage: 10 MG, DAILY
     Route: 048

REACTIONS (3)
  - WEIGHT DECREASED [None]
  - OESOPHAGEAL CARCINOMA [None]
  - THROMBOSIS [None]
